FAERS Safety Report 5238422-1 (Version None)
Quarter: 2007Q1

REPORT INFORMATION
  Report Type: 
  Country: None (occurrence: None)
  Receive Date: 20070215
  Receipt Date: 20070208
  Transmission Date: 20070707
  Serious: Yes (Other)
  Sender: FDA-Public Use
  Company Number: 2007UW02668

PATIENT
  Age: 65 Year
  Sex: Female
  Weight: 90.7 kg

DRUGS (2)
  1. CRESTOR [Suspect]
     Indication: BLOOD CHOLESTEROL INCREASED
     Route: 048
  2. HYPERTENSION MEDICATION [Concomitant]
     Indication: HYPERTENSION

REACTIONS (3)
  - MOTOR DYSFUNCTION [None]
  - MUSCULAR WEAKNESS [None]
  - TRIGGER FINGER [None]
